FAERS Safety Report 8986230 (Version 1)
Quarter: 2012Q4

REPORT INFORMATION
  Report Type: Spontaneous
  Country: US (occurrence: None)
  Receive Date: 20121219
  Receipt Date: 20121219
  Transmission Date: 20130627
  Serious: No
  Sender: FDA-Public Use
  Company Number: None

PATIENT
  Age: 64 Year
  Sex: Male

DRUGS (3)
  1. REVLIMID 5 MG CELGENE [Suspect]
     Indication: AML
     Dosage: Revlimid 5mg every other day orally
     Route: 048
     Dates: start: 201105, end: 201206
  2. LORAZEPAM [Suspect]
  3. METOPROLOL [Concomitant]

REACTIONS (1)
  - Full blood count decreased [None]
